FAERS Safety Report 8259024-9 (Version None)
Quarter: 2012Q2

REPORT INFORMATION
  Report Type: 
  Country: None (occurrence: None)
  Receive Date: 20120404
  Receipt Date: 20120329
  Transmission Date: 20120825
  Serious: No
  Sender: FDA-Public Use
  Company Number: US-PFIZER INC-2012081588

PATIENT
  Sex: Female

DRUGS (4)
  1. DARVON [Suspect]
     Dosage: UNK
  2. THEOPHYLLINE [Suspect]
     Dosage: UNK
  3. ASPIRIN [Suspect]
     Dosage: UNK
  4. POTASSIUM PENCILLIN G [Suspect]
     Dosage: UNK

REACTIONS (2)
  - DRUG HYPERSENSITIVITY [None]
  - RASH [None]
